FAERS Safety Report 17857343 (Version 1)
Quarter: 2020Q2

REPORT INFORMATION
  Report Type: Spontaneous
  Country: PL (occurrence: PL)
  Receive Date: 20200603
  Receipt Date: 20200603
  Transmission Date: 20200714
  Serious: Yes (Other)
  Sender: FDA-Public Use
  Company Number: PL-BAXTER-2020BAX011440

PATIENT
  Age: 64 Year
  Sex: Female
  Weight: 70 kg

DRUGS (3)
  1. EPIRUBICIN ACCORD [Suspect]
     Active Substance: EPIRUBICIN HYDROCHLORIDE
     Dosage: THERAPY ONGOING
     Route: 042
     Dates: start: 20191129
  2. EPIRUBICIN ACCORD [Suspect]
     Active Substance: EPIRUBICIN HYDROCHLORIDE
     Indication: BREAST CANCER
     Dosage: THERAPY ONGOING
     Route: 042
     Dates: start: 20191129
  3. ENDOXAN [Suspect]
     Active Substance: CYCLOPHOSPHAMIDE
     Indication: BREAST CANCER
     Dosage: DOSE: 1074; THERAPY ONGOING
     Route: 042
     Dates: start: 20191129

REACTIONS (1)
  - Administration site extravasation [Recovering/Resolving]

NARRATIVE: CASE EVENT DATE: 20191220
